FAERS Safety Report 24252977 (Version 1)
Quarter: 2024Q3

REPORT INFORMATION
  Report Type: Spontaneous
  Country: GB (occurrence: GB)
  Receive Date: 20240827
  Receipt Date: 20240827
  Transmission Date: 20241017
  Serious: Yes (Disabling, Other)
  Sender: HIKMA
  Company Number: None

PATIENT
  Age: 61 Year
  Sex: Female
  Weight: 52 kg

DRUGS (2)
  1. CIPROFLOXACIN [Suspect]
     Active Substance: CIPROFLOXACIN
     Indication: Bacterial sepsis
     Dosage: UNK UNK, Q6H
     Route: 042
     Dates: start: 20240811, end: 20240817
  2. METRONIDAZOLE [Concomitant]
     Active Substance: METRONIDAZOLE
     Indication: Gastrointestinal infection
     Dosage: UNK
     Route: 065
     Dates: start: 20240811, end: 20240817

REACTIONS (12)
  - Psychotic disorder [Recovered/Resolved with Sequelae]
  - Feeling abnormal [Unknown]
  - Tension [Unknown]
  - Anxiety [Not Recovered/Not Resolved]
  - Insomnia [Unknown]
  - Chest pain [Unknown]
  - Tachycardia [Unknown]
  - Hallucinations, mixed [Not Recovered/Not Resolved]
  - Hallucination, olfactory [Unknown]
  - Feeling hot [Unknown]
  - Tendon disorder [Unknown]
  - Hypnagogic hallucination [Not Recovered/Not Resolved]

NARRATIVE: CASE EVENT DATE: 20240813
